FAERS Safety Report 6458128-0 (Version None)
Quarter: 2009Q4

REPORT INFORMATION
  Report Type: 
  Country: None (occurrence: None)
  Receive Date: 20091125
  Receipt Date: 20090612
  Transmission Date: 20100525
  Serious: No
  Sender: FDA-Public Use
  Company Number: US-AMGEN-KDL351423

PATIENT
  Sex: Female

DRUGS (15)
  1. ENBREL [Suspect]
     Indication: RHEUMATOID ARTHRITIS
     Route: 058
     Dates: start: 20070928
  2. PLAQUENIL [Concomitant]
     Dates: start: 20090401
  3. METHOTREXATE [Concomitant]
     Dates: start: 20080601
  4. FOLIC ACID [Concomitant]
     Route: 047
  5. PREDNISONE TAB [Concomitant]
  6. INSULIN [Concomitant]
  7. PRAVASTATIN [Concomitant]
  8. ZETIA [Concomitant]
  9. LASIX [Concomitant]
  10. OMEPRAZOLE [Concomitant]
  11. VERAPAMIL [Concomitant]
  12. DIOVAN [Concomitant]
  13. TEMAZEPAM [Concomitant]
  14. CITALOPRAM HYDROBROMIDE [Concomitant]
  15. VICODIN [Concomitant]

REACTIONS (2)
  - ARTHRALGIA [None]
  - SKIN ULCER [None]
